FAERS Safety Report 11771287 (Version 1)
Quarter: 2015Q4

REPORT INFORMATION
  Report Type: Spontaneous
  Country: IN (occurrence: IN)
  Receive Date: 20151124
  Receipt Date: 20151124
  Transmission Date: 20160304
  Serious: Yes (Death, Other)
  Sender: FDA-Public Use
  Company Number: IN-CIPLA LTD.-2015IN08738

PATIENT

DRUGS (4)
  1. CELECOXIB. [Suspect]
     Active Substance: CELECOXIB
     Route: 065
  2. CAPECITABINE. [Suspect]
     Active Substance: CAPECITABINE
     Indication: OESOPHAGEAL CARCINOMA
     Route: 065
  3. GEFITINIB [Suspect]
     Active Substance: GEFITINIB
     Indication: OESOPHAGEAL ADENOCARCINOMA METASTATIC
     Dosage: 250 MG, DAILY
     Route: 065
  4. PACLITAXEL. [Suspect]
     Active Substance: PACLITAXEL
     Indication: OESOPHAGEAL CARCINOMA
     Dosage: UNK, WEEKLY
     Route: 065

REACTIONS (10)
  - Metastasis [Unknown]
  - Diarrhoea [Recovered/Resolved]
  - Disease progression [Unknown]
  - Hepatic enzyme increased [Unknown]
  - Hepatic failure [Fatal]
  - Disease recurrence [Unknown]
  - Dysphagia [Unknown]
  - Epistaxis [Unknown]
  - Blood bilirubin increased [Unknown]
  - Mucosal inflammation [Unknown]
